FAERS Safety Report 5926162-2 (Version None)
Quarter: 2008Q4

REPORT INFORMATION
  Report Type: 
  Country: None (occurrence: None)
  Receive Date: 20081017
  Receipt Date: 20081006
  Transmission Date: 20090506
  Serious: Yes (Hospitalization)
  Sender: FDA-Public Use
  Company Number: 230436K08USA

PATIENT
  Age: 51 Year
  Sex: Female
  Weight: 73 kg

DRUGS (3)
  1. REBIF [Suspect]
     Indication: MULTIPLE SCLEROSIS
     Dates: start: 20050804, end: 20080101
  2. LEVOXYL [Concomitant]
  3. BACLOFEN [Concomitant]

REACTIONS (5)
  - ABASIA [None]
  - CONDITION AGGRAVATED [None]
  - IMMOBILE [None]
  - MULTIPLE SCLEROSIS [None]
  - URINARY TRACT INFECTION [None]
